FAERS Safety Report 15280169 (Version 1)
Quarter: 2018Q3

REPORT INFORMATION
  Report Type: Spontaneous
  Country: DE (occurrence: DE)
  Receive Date: 20180815
  Receipt Date: 20180815
  Transmission Date: 20181010
  Serious: Yes (Life-Threatening, Hospitalization)
  Sender: FDA-Public Use
  Company Number: DE-TEVA-2018-DE-943145

PATIENT
  Age: 47 Year
  Sex: Female

DRUGS (1)
  1. BACLOFEN. [Suspect]
     Active Substance: BACLOFEN
     Indication: ALCOHOLISM
     Dosage: INITIAL DOSE NOT STATED, BUT INITIATED WITH INCREASING DOSES OVER 1 WEEK; LATEST DOSE: 8 X 25MG, ...
     Route: 065

REACTIONS (14)
  - Multiple organ dysfunction syndrome [Recovering/Resolving]
  - Accidental overdose [Unknown]
  - Rhabdomyolysis [Unknown]
  - Renal impairment [Recovering/Resolving]
  - Device related sepsis [Unknown]
  - Anuria [Recovering/Resolving]
  - Amnesia [Unknown]
  - Fall [Unknown]
  - Candida infection [Unknown]
  - Pulmonary oedema [Recovering/Resolving]
  - Stress cardiomyopathy [Recovering/Resolving]
  - Delirium [Unknown]
  - Off label use [Unknown]
  - Haematoma [Unknown]
